FAERS Safety Report 10199651 (Version 1)
Quarter: 2014Q2

REPORT INFORMATION
  Report Type: Report from Study
  Country: US (occurrence: US)
  Receive Date: 20140527
  Receipt Date: 20140527
  Transmission Date: 20141212
  Serious: Yes (Death)
  Sender: FDA-Public Use
  Company Number: US-SA-2014SA066839

PATIENT
  Sex: 0

DRUGS (3)
  1. FLUDARABINE PHOSPHATE [Suspect]
     Indication: BONE MARROW CONDITIONING REGIMEN
     Dosage: DOSE: 30 MG/M2/DAY INFUSED OVER 30 MINUTES FOR 5 DAYS ON DAYS -6 THROUGH -2
     Route: 065
  2. BUSULFAN [Suspect]
     Indication: BONE MARROW CONDITIONING REGIMEN
     Dosage: DOSE: 3.2 MG/KG/DAY ON DAYS -3 AND -2 (INFUSION RATE 80 MG/KG/HOUR)
     Route: 042
  3. THYMOGLOBULIN [Concomitant]

REACTIONS (2)
  - Death [Fatal]
  - Off label use [Unknown]
